FAERS Safety Report 24055924 (Version 1)
Quarter: 2024Q3

REPORT INFORMATION
  Report Type: Report from Study
  Country: US (occurrence: US)
  Receive Date: 20240705
  Receipt Date: 20240705
  Transmission Date: 20241017
  Serious: Yes (Other)
  Sender: ABBVIE
  Company Number: US-ABBVIE-5826316

PATIENT
  Age: 82 Year
  Sex: Male

DRUGS (2)
  1. DUOPA [Suspect]
     Active Substance: CARBIDOPA\LEVODOPA
     Indication: Parkinson^s disease
     Route: 050
     Dates: start: 202207
  2. DUOPA [Suspect]
     Active Substance: CARBIDOPA\LEVODOPA

REACTIONS (4)
  - Device dislocation [Unknown]
  - Fatigue [Recovering/Resolving]
  - Medical device change [Recovering/Resolving]
  - Bladder catheterisation [Recovering/Resolving]

NARRATIVE: CASE EVENT DATE: 20240501
